FAERS Safety Report 23511295 (Version 3)
Quarter: 2024Q1

REPORT INFORMATION
  Report Type: Spontaneous
  Country: GB (occurrence: GB)
  Receive Date: 20240212
  Receipt Date: 20240301
  Transmission Date: 20240409
  Serious: Yes (Hospitalization)
  Sender: FDA-Public Use
  Company Number: GB-VA000000605-2023008707

PATIENT
  Sex: Male

DRUGS (6)
  1. EVEROLIMUS [Suspect]
     Active Substance: EVEROLIMUS
     Indication: Product used for unknown indication
     Route: 065
  2. PASIREOTIDE [Suspect]
     Active Substance: PASIREOTIDE
     Indication: Insulinoma
     Route: 030
     Dates: start: 20231223
  3. PASIREOTIDE [Suspect]
     Active Substance: PASIREOTIDE
     Indication: Insulinoma
     Route: 030
     Dates: start: 20231127
  4. LUTATHERA [Concomitant]
     Active Substance: LUTETIUM OXODOTREOTIDE LU-177
     Indication: Hypoglycaemia
     Dosage: UNK
     Dates: start: 2018
  5. LUTATHERA [Concomitant]
     Active Substance: LUTETIUM OXODOTREOTIDE LU-177
     Indication: Hypoglycaemia
     Dosage: 8 (UNK), WEEKLY (SECOND COURSE OF TREATMENT)
  6. UNSPECIFIED INGREDIENT [Concomitant]
     Active Substance: UNSPECIFIED INGREDIENT
     Dosage: (UNSPECIFIED)

REACTIONS (2)
  - Pneumonitis [Unknown]
  - Off label use [Recovered/Resolved]

NARRATIVE: CASE EVENT DATE: 20231127
